FAERS Safety Report 13386607 (Version 4)
Quarter: 2017Q4

REPORT INFORMATION
  Report Type: Spontaneous
  Country: US (occurrence: US)
  Receive Date: 20170330
  Receipt Date: 20171213
  Transmission Date: 20180320
  Serious: Yes (Other)
  Sender: FDA-Public Use
  Company Number: US-PFIZER INC-2017134413

PATIENT
  Age: 80 Year
  Sex: Female
  Weight: 60.33 kg

DRUGS (9)
  1. IBRANCE [Suspect]
     Active Substance: PALBOCICLIB
     Dosage: 75 MG, CYCLIC, (75 MG 21 DAYS EVERY 28 DAYS)
     Dates: start: 201701, end: 201709
  2. PRAVASTATIN. [Concomitant]
     Active Substance: PRAVASTATIN
     Indication: BLOOD CHOLESTEROL ABNORMAL
     Dosage: 40 MG, ONCE DAILY (AT BEDTIME)
  3. IBRANCE [Suspect]
     Active Substance: PALBOCICLIB
     Indication: BREAST CANCER
     Dosage: 125 MG CYCLIC, (ONCE A DAY FOR 21 OF 28 DAYS)
     Dates: start: 20170124
  4. IBRANCE [Suspect]
     Active Substance: PALBOCICLIB
     Dosage: 100 MG, UNK,
     Dates: start: 20170221
  5. FASLODEX [Suspect]
     Active Substance: FULVESTRANT
     Dosage: 500 MG, DAILY, ( 28 DAYS)
     Route: 030
     Dates: start: 201701, end: 201709
  6. LETROZOLE. [Concomitant]
     Active Substance: LETROZOLE
     Dosage: UNK
  7. IBRANCE [Suspect]
     Active Substance: PALBOCICLIB
     Dosage: 75 MG, UNK,
     Dates: start: 20170321
  8. IBRANCE [Suspect]
     Active Substance: PALBOCICLIB
     Dosage: 100 MG, ONCE A DAY
     Dates: start: 20170123
  9. AMLODIPINE [Concomitant]
     Active Substance: AMLODIPINE BESYLATE
     Indication: BLOOD PRESSURE ABNORMAL
     Dosage: 5 MG, ONCE A DAY

REACTIONS (4)
  - Neutropenia [Recovered/Resolved]
  - Blood glucose increased [Unknown]
  - Neoplasm progression [Not Recovered/Not Resolved]
  - Fatigue [Recovering/Resolving]

NARRATIVE: CASE EVENT DATE: 2017
